FAERS Safety Report 14676318 (Version 1)
Quarter: 2018Q1

REPORT INFORMATION
  Report Type: Spontaneous
  Country: US (occurrence: GB)
  Receive Date: 20180323
  Receipt Date: 20180323
  Transmission Date: 20180509
  Serious: Yes (Other)
  Sender: FDA-Public Use
  Company Number: US-SUNOVION-2018SUN001100

PATIENT

DRUGS (3)
  1. CANDESARTAN. [Concomitant]
     Active Substance: CANDESARTAN
     Dosage: UNK
  2. INDACATEROL AND GLYCOPYRROLATE [Suspect]
     Active Substance: GLYCOPYRROLATE\INDACATEROL MALEATE
     Indication: CHRONIC OBSTRUCTIVE PULMONARY DISEASE
     Dosage: UNK
     Route: 055
     Dates: end: 201801
  3. RANITIDINE. [Concomitant]
     Active Substance: RANITIDINE
     Dosage: UNK

REACTIONS (9)
  - Oropharyngeal pain [Unknown]
  - Food intolerance [Unknown]
  - Maternal exposure during pregnancy [Unknown]
  - Gastrointestinal obstruction [Unknown]
  - Duodenitis [Unknown]
  - Abdominal distension [Unknown]
  - Cough [Unknown]
  - Weight increased [Unknown]
  - Vomiting [Unknown]
